FAERS Safety Report 7705072-4 (Version None)
Quarter: 2011Q3

REPORT INFORMATION
  Report Type: 
  Country: None (occurrence: None)
  Receive Date: 20110823
  Receipt Date: 20110817
  Transmission Date: 20111222
  Serious: Yes (Other)
  Sender: FDA-Public Use
  Company Number: US-MERCK-1108USA02062

PATIENT
  Age: 60 Year
  Sex: Female

DRUGS (2)
  1. MEVACOR [Suspect]
     Indication: BLOOD CHOLESTEROL INCREASED
     Route: 048
     Dates: end: 20110519
  2. NIACIN [Suspect]
     Dosage: 500 MG
     Route: 065
     Dates: start: 20110501, end: 20110519

REACTIONS (6)
  - RASH MACULAR [None]
  - BLOOD GLUCOSE INCREASED [None]
  - BACTERIAL TEST POSITIVE [None]
  - BLOOD PRESSURE INCREASED [None]
  - COLON CANCER [None]
  - ERYTHEMA [None]
